FAERS Safety Report 24019200 (Version 2)
Quarter: 2024Q3

REPORT INFORMATION
  Report Type: Report from Study
  Country: CO (occurrence: CO)
  Receive Date: 20240627
  Receipt Date: 20240725
  Transmission Date: 20241017
  Serious: Yes (Other)
  Sender: GLAXOSMITHKLINE
  Company Number: CO-GLAXOSMITHKLINE-CO2024AMR050271

PATIENT

DRUGS (1)
  1. NIRAPARIB [Suspect]
     Active Substance: NIRAPARIB
     Indication: Ovarian cancer
     Dosage: 200 MG, QD, DAILY
     Dates: start: 20240409

REACTIONS (8)
  - Choking [Not Recovered/Not Resolved]
  - Nausea [Unknown]
  - Constipation [Unknown]
  - Chest pain [Not Recovered/Not Resolved]
  - Blood glucose increased [Not Recovered/Not Resolved]
  - Headache [Not Recovered/Not Resolved]
  - Blood pressure increased [Not Recovered/Not Resolved]
  - Sputum increased [Not Recovered/Not Resolved]

NARRATIVE: CASE EVENT DATE: 20240517
